FAERS Safety Report 5162471-5 (Version None)
Quarter: 2006Q4

REPORT INFORMATION
  Report Type: 
  Country: None (occurrence: None)
  Receive Date: 20061129
  Receipt Date: 20061129
  Transmission Date: 20070319
  Serious: No
  Sender: FDA-Public Use
  Company Number: None

PATIENT
  Sex: Female
  Weight: 82.5547 kg

DRUGS (1)
  1. ATENOLOL [Suspect]
     Indication: HYPERTENSION
     Dosage: 100MG QD PO
     Route: 048
     Dates: start: 20060919, end: 20060927

REACTIONS (3)
  - HEART RATE INCREASED [None]
  - PALPITATIONS [None]
  - URINARY TRACT DISORDER [None]
